FAERS Safety Report 19305964 (Version 1)
Quarter: 2021Q2

REPORT INFORMATION
  Report Type: Spontaneous
  Country: US (occurrence: US)
  Receive Date: 20210526
  Receipt Date: 20210526
  Transmission Date: 20210717
  Serious: No
  Sender: FDA-Public Use
  Company Number: US-HIKMA PHARMACEUTICALS USA INC.-US-H14001-21-01773

PATIENT
  Sex: Female
  Weight: 57 kg

DRUGS (2)
  1. TESTOSTERONE. [Suspect]
     Active Substance: TESTOSTERONE
     Indication: BODY DYSMORPHIC DISORDER
     Dosage: ONCE A WEEK, EVERY THUESDAY
     Route: 065
     Dates: start: 20201209
  2. TESTOSTERONE. [Suspect]
     Active Substance: TESTOSTERONE
     Dosage: ONCE A WEEK, EVERY THUESDAY
     Route: 065

REACTIONS (1)
  - Product administration error [Unknown]
